FAERS Safety Report 13739479 (Version 1)
Quarter: 2017Q3

REPORT INFORMATION
  Report Type: Spontaneous
  Country: GB (occurrence: GB)
  Receive Date: 20170711
  Receipt Date: 20170711
  Transmission Date: 20171127
  Serious: Yes (Other)
  Sender: FDA-Public Use
  Company Number: PHHY2017GB094228

PATIENT
  Age: 6 Year
  Sex: Female

DRUGS (1)
  1. METFORMIN [Suspect]
     Active Substance: METFORMIN HYDROCHLORIDE
     Indication: FOETAL EXPOSURE DURING PREGNANCY
     Route: 064

REACTIONS (8)
  - Abnormal behaviour [Unknown]
  - Dysphagia [Unknown]
  - Feeding disorder [Unknown]
  - Foetal exposure during pregnancy [Unknown]
  - Oesophageal achalasia [Unknown]
  - Infantile vomiting [Unknown]
  - Microcephaly [Unknown]
  - Fine motor delay [Unknown]
